FAERS Safety Report 6982044-9 (Version None)
Quarter: 2010Q3

REPORT INFORMATION
  Report Type: 
  Country: None (occurrence: None)
  Receive Date: 20100914
  Receipt Date: 20091111
  Transmission Date: 20110219
  Serious: Yes (Other)
  Sender: FDA-Public Use
  Company Number: US-PFIZER INC-2009276267

PATIENT
  Sex: Male
  Weight: 72.562 kg

DRUGS (2)
  1. LYRICA [Suspect]
     Indication: PAIN
     Dosage: FREQUENCY: 2X/DAY,
     Route: 048
     Dates: start: 20090913
  2. NEURONTIN [Suspect]
     Indication: PAIN
     Route: 048
     Dates: start: 20090729, end: 20090909

REACTIONS (6)
  - AGITATION [None]
  - DRUG INEFFECTIVE [None]
  - FEELING ABNORMAL [None]
  - MOOD ALTERED [None]
  - SOMNOLENCE [None]
  - SUICIDAL IDEATION [None]
